FAERS Safety Report 4319251-X (Version None)
Quarter: 2004Q1

REPORT INFORMATION
  Report Type: 
  Country: None (occurrence: None)
  Receive Date: 20040318
  Receipt Date: 20040318
  Transmission Date: 20041129
  Serious: Yes (Other)
  Sender: FDA-Public Use
  Company Number: None

PATIENT
  Sex: Male
  Weight: 102.0593 kg

DRUGS (2)
  1. RABEPRAZOLE SODIUM [Suspect]
     Indication: REGURGITATION OF FOOD
     Dosage: 20 MG DAILY ORAL
     Route: 048
     Dates: start: 20031218, end: 20040105
  2. OMEPRAZOLE [Suspect]
     Indication: REGURGITATION OF FOOD
     Dosage: 20 MG DAILY ORAL
     Route: 048
     Dates: start: 20040105, end: 20040308

REACTIONS (1)
  - PRURITUS [None]
